FAERS Safety Report 9026665 (Version 1)
Quarter: 2013Q1

REPORT INFORMATION
  Report Type: Spontaneous
  Country: ES (occurrence: ES)
  Receive Date: 20130123
  Receipt Date: 20130123
  Transmission Date: 20140127
  Serious: No
  Sender: FDA-Public Use
  Company Number: ES-ELI_LILLY_AND_COMPANY-ES201301006469

PATIENT
  Sex: Male

DRUGS (1)
  1. STRATTERA [Suspect]
     Indication: ATTENTION DEFICIT/HYPERACTIVITY DISORDER
     Dosage: 18 MG, QD
     Route: 048
     Dates: start: 20130105

REACTIONS (9)
  - Pain in extremity [Unknown]
  - Abdominal pain [Unknown]
  - Fatigue [Unknown]
  - Dizziness [Unknown]
  - Vomiting [Unknown]
  - Somnolence [Unknown]
  - Depressed mood [Unknown]
  - Nervousness [Unknown]
  - Abnormal behaviour [Unknown]
